FAERS Safety Report 26192128 (Version 1)
Quarter: 2025Q4

REPORT INFORMATION
  Report Type: Report from Study
  Country: US (occurrence: US)
  Receive Date: 20251223
  Receipt Date: 20251223
  Transmission Date: 20260118
  Serious: Yes (Other)
  Sender: PFIZER
  Company Number: US-PFIZER INC-202500240914

PATIENT
  Age: 58 Year
  Sex: Male

DRUGS (2)
  1. TALZENNA [Suspect]
     Active Substance: TALAZOPARIB TOSYLATE
     Indication: Prostate cancer
     Dosage: 0.5 MG, DAILY (WITH OR WITHOUT FOOD)
     Dates: end: 2025
  2. XTANDI [Concomitant]
     Active Substance: ENZALUTAMIDE
     Dosage: UNK

REACTIONS (10)
  - Full blood count decreased [Unknown]
  - Haemoglobin decreased [Unknown]
  - Seasonal allergy [Unknown]
  - Muscle strain [Unknown]
  - Pain [Unknown]
  - Sleep disorder [Unknown]
  - Dyspnoea [Unknown]
  - Cough [Unknown]
  - Fatigue [Unknown]
  - Nausea [Unknown]
